FAERS Safety Report 8954329 (Version 1)
Quarter: 2012Q4

REPORT INFORMATION
  Report Type: 
  Country: US (occurrence: US)
  Receive Date: 20121210
  Receipt Date: 20121210
  Transmission Date: 20130627
  Serious: No
  Sender: FDA-Public Use
  Company Number: US-009507513-1212USA001919

PATIENT
  Sex: Female

DRUGS (2)
  1. PEGINTRON [Suspect]
     Indication: HEPATITIS C
     Dosage: UNK, qw
     Route: 065
     Dates: start: 20000204, end: 20010102
  2. RIBAVIRIN [Suspect]
     Indication: HEPATITIS C
     Dosage: UNK, Unknown
     Route: 065
     Dates: start: 20000204, end: 20010105

REACTIONS (1)
  - Drug ineffective [Unknown]
